FAERS Safety Report 6068098-5 (Version None)
Quarter: 2009Q1

REPORT INFORMATION
  Report Type: 
  Country: None (occurrence: None)
  Receive Date: 20090206
  Receipt Date: 20090102
  Transmission Date: 20090719
  Serious: No
  Sender: FDA-Public Use
  Company Number: US-BAYER-200910177NA

PATIENT
  Age: 27 Year
  Sex: Female

DRUGS (2)
  1. MIRENA [Suspect]
     Indication: CONTRACEPTION
     Route: 015
     Dates: start: 20081101
  2. MIRENA [Suspect]
     Route: 015
     Dates: start: 20080401, end: 20081101

REACTIONS (2)
  - GENITAL HAEMORRHAGE [None]
  - IUCD COMPLICATION [None]
